FAERS Safety Report 6757956-1 (Version None)
Quarter: 2010Q2

REPORT INFORMATION
  Report Type: 
  Country: None (occurrence: None)
  Receive Date: 20100604
  Receipt Date: 20100604
  Transmission Date: 20101027
  Serious: Yes (Hospitalization)
  Sender: FDA-Public Use
  Company Number: None

PATIENT
  Sex: Male
  Weight: 101 kg

DRUGS (2)
  1. SUL [Suspect]
  2. NAPROXEN [Concomitant]

REACTIONS (3)
  - ASTHENIA [None]
  - HYPOAESTHESIA [None]
  - RENAL FAILURE ACUTE [None]
